FAERS Safety Report 20323564 (Version 2)
Quarter: 2022Q1

REPORT INFORMATION
  Report Type: Spontaneous
  Country: US (occurrence: US)
  Receive Date: 20220111
  Receipt Date: 20220120
  Transmission Date: 20220424
  Serious: No
  Sender: FDA-Public Use
  Company Number: US-ALLERGAN-2201547US

PATIENT
  Sex: Female

DRUGS (5)
  1. COMBIGAN [Suspect]
     Active Substance: BRIMONIDINE TARTRATE\TIMOLOL MALEATE
     Indication: Glaucoma
     Dosage: UNK
     Dates: start: 202110
  2. LATANOPROST [Concomitant]
     Active Substance: LATANOPROST
  3. MELOXICAM [Concomitant]
     Active Substance: MELOXICAM
  4. LOVASTATIN [Concomitant]
     Active Substance: LOVASTATIN
     Indication: Blood cholesterol
  5. ASCORBIC ACID\ERGOCALCIFEROL\NIACINAMIDE\RETINOL\RIBOFLAVIN\THIAMINE [Concomitant]
     Active Substance: ASCORBIC ACID\ERGOCALCIFEROL\NIACINAMIDE\RETINOL\RIBOFLAVIN\THIAMINE

REACTIONS (4)
  - Sinus bradycardia [Not Recovered/Not Resolved]
  - Contraindicated product administered [Unknown]
  - Therapy interrupted [Unknown]
  - Off label use [Unknown]
